FAERS Safety Report 6144194-9 (Version None)
Quarter: 2009Q2

REPORT INFORMATION
  Report Type: 
  Country: None (occurrence: None)
  Receive Date: 20090401
  Receipt Date: 20090320
  Transmission Date: 20091009
  Serious: Yes (Other)
  Sender: FDA-Public Use
  Company Number: ADE2009-0506

PATIENT
  Age: 41 Year
  Sex: Male

DRUGS (4)
  1. FLUOXETINE [Suspect]
     Indication: DEPRESSION
     Dosage: 20MG/DAY
  2. FLUOXETINE [Suspect]
     Indication: INSOMNIA
     Dosage: 20MG/DAY
  3. MIRTAZAPINE [Suspect]
     Indication: DEPRESSION
     Dosage: 15MG/DAY
  4. MIRTAZAPINE [Suspect]
     Indication: INSOMNIA
     Dosage: 15MG/DAY

REACTIONS (3)
  - ACTIVITIES OF DAILY LIVING IMPAIRED [None]
  - PERIODIC LIMB MOVEMENT DISORDER [None]
  - RESTLESS LEGS SYNDROME [None]
